FAERS Safety Report 10129757 (Version 1)
Quarter: 2014Q2

REPORT INFORMATION
  Report Type: Spontaneous
  Country: US (occurrence: None)
  Receive Date: 20140425
  Receipt Date: 20140425
  Transmission Date: 20141212
  Serious: Yes (Hospitalization)
  Sender: FDA-Public Use
  Company Number: None

PATIENT
  Age: 34 Year
  Sex: Female
  Weight: 65 kg

DRUGS (1)
  1. CISPLATIN [Suspect]

REACTIONS (11)
  - Spinal pain [None]
  - Procedural pain [None]
  - Cellulitis [None]
  - Muscular weakness [None]
  - Burning sensation [None]
  - Groin pain [None]
  - Pain [None]
  - Back pain [None]
  - Pain in extremity [None]
  - Musculoskeletal pain [None]
  - Nuclear magnetic resonance imaging abnormal [None]
